FAERS Safety Report 18811531 (Version 1)
Quarter: 2021Q1

REPORT INFORMATION
  Report Type: Report from Study
  Country: US (occurrence: US)
  Receive Date: 20210129
  Receipt Date: 20210129
  Transmission Date: 20210419
  Serious: Yes (Disabling)
  Sender: FDA-Public Use
  Company Number: NVSC2021US015602

PATIENT
  Sex: Female

DRUGS (2)
  1. KISQALI [Suspect]
     Active Substance: RIBOCICLIB
     Indication: BREAST CANCER METASTATIC
     Dosage: 600 MG, QD
     Route: 048
  2. KISQALI [Suspect]
     Active Substance: RIBOCICLIB
     Dosage: UNK
     Route: 065
     Dates: start: 20210101

REACTIONS (6)
  - Joint swelling [Recovering/Resolving]
  - Infection [Recovering/Resolving]
  - Weight decreased [Recovering/Resolving]
  - Alopecia [Not Recovered/Not Resolved]
  - Fatigue [Recovering/Resolving]
  - Back pain [Recovering/Resolving]
